FAERS Safety Report 15277608 (Version 1)
Quarter: 2018Q3

REPORT INFORMATION
  Report Type: Spontaneous
  Country: CN (occurrence: CN)
  Receive Date: 20180814
  Receipt Date: 20180814
  Transmission Date: 20181010
  Serious: Yes (Hospitalization, Other)
  Sender: FDA-Public Use
  Company Number: PHHY2018CN068697

PATIENT
  Age: 76 Year
  Sex: Female
  Weight: 55 kg

DRUGS (1)
  1. ACLASTA [Suspect]
     Active Substance: ZOLEDRONIC ACID
     Indication: OSTEOPOROSIS
     Dosage: UNK
     Route: 041
     Dates: start: 20180712

REACTIONS (25)
  - Hypertension [Unknown]
  - Pneumonia [Unknown]
  - Shock [Unknown]
  - Respiratory failure [Unknown]
  - Infection [Unknown]
  - Peripheral arterial occlusive disease [Unknown]
  - Varicose vein [Unknown]
  - Bundle branch block right [Unknown]
  - Cardiac failure acute [Unknown]
  - Cerebral infarction [Unknown]
  - Hepatic steatosis [Unknown]
  - Liver function test abnormal [Unknown]
  - Cardiac failure [Unknown]
  - Diarrhoea infectious [Unknown]
  - Sinus bradycardia [Unknown]
  - Blood pressure decreased [Unknown]
  - Acute kidney injury [Unknown]
  - Osteoarthritis [Unknown]
  - Pyrexia [Unknown]
  - Electrolyte imbalance [Unknown]
  - Arrhythmia [Unknown]
  - Pain [Unknown]
  - Pleural effusion [Unknown]
  - Diarrhoea [Unknown]
  - Hypoproteinaemia [Unknown]

NARRATIVE: CASE EVENT DATE: 20180712
